FAERS Safety Report 18124251 (Version 5)
Quarter: 2020Q3

REPORT INFORMATION
  Report Type: Report from Study
  Country: JP (occurrence: JP)
  Receive Date: 20200807
  Receipt Date: 20200908
  Transmission Date: 20201103
  Serious: Yes (Hospitalization)
  Sender: FDA-Public Use
  Company Number: JP-PFIZER INC-2020295253

PATIENT
  Age: 56 Year
  Sex: Male
  Weight: 56.5 kg

DRUGS (18)
  1. CETUXIMAB. [Suspect]
     Active Substance: CETUXIMAB
     Indication: RECTAL CANCER
     Dosage: 341 MG
     Route: 041
     Dates: start: 20200626
  2. MINOCYCLINE HYDROCHLORIDE NICHIIKO [Concomitant]
     Active Substance: MINOCYCLINE HYDROCHLORIDE
     Dosage: UNK
     Dates: start: 20200704
  3. CAMSHIA [Concomitant]
     Active Substance: AMLODIPINE BESYLATE\CANDESARTAN CILEXETIL
     Dosage: UNK
     Dates: start: 201912
  4. NOVAMIN [PROCHLORPERAZINE MALEATE] [Concomitant]
     Active Substance: PROCHLORPERAZINE MALEATE
     Dosage: UNK
     Dates: start: 20200630
  5. LOXOPROFEN NA [Concomitant]
     Active Substance: LOXOPROFEN SODIUM
     Dosage: UNK
     Dates: start: 20200528
  6. ENCORAFENIB [Suspect]
     Active Substance: ENCORAFENIB
     Indication: RECTAL CANCER
     Dosage: 225 MG, DAILY
     Route: 048
     Dates: start: 20200626, end: 20200708
  7. ENCORAFENIB [Suspect]
     Active Substance: ENCORAFENIB
     Dosage: UNK UNK, DAILY
     Route: 048
     Dates: start: 20200722, end: 20200729
  8. TAKECAB [Concomitant]
     Active Substance: VONOPRAZAN FUMARATE
     Dosage: UNK
     Dates: start: 20200528
  9. BINIMETINIB [Suspect]
     Active Substance: BINIMETINIB
     Indication: RECTAL CANCER
     Dosage: 45 MG, 2X/DAY
     Route: 048
     Dates: start: 20200626, end: 20200708
  10. CETUXIMAB. [Suspect]
     Active Substance: CETUXIMAB
     Dosage: UNK MG
     Route: 041
     Dates: start: 20200722, end: 20200722
  11. SYMPROIC [Concomitant]
     Active Substance: NALDEMEDINE
     Dosage: UNK
     Dates: start: 20200627
  12. HEPARINOID [Concomitant]
     Active Substance: CHONDROITIN SULFATE (BOVINE)
     Dosage: CREAM
     Dates: start: 20200704
  13. ALMETA [Concomitant]
     Active Substance: ALCLOMETASONE DIPROPIONATE
     Dosage: CREAM
     Dates: start: 20200704
  14. OXINORM [OXYCODONE HYDROCHLORIDE] [Concomitant]
     Active Substance: OXYCODONE HYDROCHLORIDE
     Dosage: POWDER (EXCEPT [DPO])
     Dates: start: 20200528
  15. DERMOVATE [Concomitant]
     Active Substance: CLOBETASOL
     Dosage: LOTION (EXCEPT LOTION FOR EYE)
     Dates: start: 20200722
  16. MYSER [DIFLUPREDNATE] [Concomitant]
     Dosage: CREAM
     Dates: start: 20200704
  17. OXYCONTIN TR [Concomitant]
     Active Substance: OXYCODONE HYDROCHLORIDE
     Dosage: UNK
     Dates: start: 20200528
  18. RINDERON V [Concomitant]
     Active Substance: BETAMETHASONE VALERATE
     Dosage: LOTION (EXCEPT LOTION FOR EYE)
     Dates: start: 20200704

REACTIONS (1)
  - Renal impairment [Recovering/Resolving]

NARRATIVE: CASE EVENT DATE: 20200730
